FAERS Safety Report 4665519-7 (Version None)
Quarter: 2005Q2

REPORT INFORMATION
  Report Type: 
  Country: None (occurrence: None)
  Receive Date: 20050519
  Receipt Date: 20040415
  Transmission Date: 20051028
  Serious: No
  Sender: FDA-Public Use
  Company Number: US-BRISTOL-MYERS SQUIBB COMPANY-12561650

PATIENT
  Age: 76 Year
  Sex: Female
  Weight: 73 kg

DRUGS (1)
  1. MUTAMYCIN [Suspect]
     Indication: BLADDER CANCER
     Route: 043
     Dates: start: 20031030, end: 20031030

REACTIONS (1)
  - URINARY BLADDER HAEMORRHAGE [None]
